FAERS Safety Report 6761701-3 (Version None)
Quarter: 2010Q2

REPORT INFORMATION
  Report Type: 
  Country: None (occurrence: None)
  Receive Date: 20100518
  Receipt Date: 20100507
  Transmission Date: 20101027
  Serious: Yes (Hospitalization, Other)
  Sender: FDA-Public Use
  Company Number: 2010022983

PATIENT
  Age: 44 Year
  Sex: Female

DRUGS (9)
  1. HAEMOCOMPLETTAN P (FIBRINOGEN CONCENTRATE (HUMAN)) LOT# 00969912B, LOT [Suspect]
     Indication: GASTROINTESTINAL HAEMORRHAGE
     Dosage: 4 IU INTRAVENOUS, 7 IU INTRAVENOUS
     Route: 042
     Dates: start: 20100212, end: 20100212
  2. HAEMOCOMPLETTAN P (FIBRINOGEN CONCENTRATE (HUMAN)) LOT# 00969912B, LOT [Suspect]
     Indication: OVERDOSE
     Dosage: 4 IU INTRAVENOUS, 7 IU INTRAVENOUS
     Route: 042
     Dates: start: 20100212, end: 20100212
  3. HAEMOCOMPLETTAN P (FIBRINOGEN CONCENTRATE (HUMAN)) LOT# 00969912B, LOT [Suspect]
     Indication: GASTROINTESTINAL HAEMORRHAGE
     Dosage: 4 IU INTRAVENOUS, 7 IU INTRAVENOUS
     Route: 042
     Dates: start: 20100224, end: 20100224
  4. HAEMOCOMPLETTAN P (FIBRINOGEN CONCENTRATE (HUMAN)) LOT# 00969912B, LOT [Suspect]
     Indication: OVERDOSE
     Dosage: 4 IU INTRAVENOUS, 7 IU INTRAVENOUS
     Route: 042
     Dates: start: 20100224, end: 20100224
  5. OCTAPLAS (PLASMA PROTEIN FRACTION (HUMAN)) [Suspect]
     Indication: GASTROINTESTINAL HAEMORRHAGE
     Dosage: INTRAVENOUS
     Route: 042
     Dates: start: 20100212, end: 20100212
  6. PLATELETS [Concomitant]
  7. RED BLOOD CELLS [Concomitant]
  8. PLATELETS [Concomitant]
  9. PLASMA [Concomitant]

REACTIONS (2)
  - HEPATITIS C ANTIBODY POSITIVE [None]
  - TRANSMISSION OF AN INFECTIOUS AGENT VIA A MEDICINAL PRODUCT [None]
